FAERS Safety Report 6028047-2 (Version None)
Quarter: 2008Q4

REPORT INFORMATION
  Report Type: 
  Country: None (occurrence: None)
  Receive Date: 20081231
  Receipt Date: 20081216
  Transmission Date: 20090506
  Serious: Yes (Hospitalization)
  Sender: FDA-Public Use
  Company Number: 2008S1022386

PATIENT
  Age: 16 Month
  Sex: Male

DRUGS (3)
  1. NAPROXEN [Suspect]
     Indication: JUVENILE ARTHRITIS
     Dosage: 17 MG/KG; DAILY;
  2. TRIAMCINOLONE [Concomitant]
  3. FERROUS FUMARATE [Concomitant]

REACTIONS (7)
  - CARDIAC MURMUR [None]
  - FAECES DISCOLOURED [None]
  - HEART RATE INCREASED [None]
  - HYPOALBUMINAEMIA [None]
  - IRON DEFICIENCY ANAEMIA [None]
  - OCCULT BLOOD POSITIVE [None]
  - RESPIRATORY RATE INCREASED [None]
